FAERS Safety Report 16219625 (Version 1)
Quarter: 2019Q2

REPORT INFORMATION
  Report Type: Spontaneous
  Country: DE (occurrence: DE)
  Receive Date: 20190420
  Receipt Date: 20190420
  Transmission Date: 20190711
  Serious: Yes (Other)
  Sender: FDA-Public Use
  Company Number: DE-AUROBINDO-AUR-APL-2019-021372

PATIENT

DRUGS (8)
  1. SPIRONOLACTONE. [Concomitant]
     Active Substance: SPIRONOLACTONE
     Indication: HYPERTENSION
     Dosage: 25 MILLIGRAM, ONCE A DAY,25 [MG/D ]
     Route: 064
     Dates: start: 20171012, end: 20180614
  2. METOPROLOL. [Suspect]
     Active Substance: METOPROLOL
     Indication: HYPERTENSION
     Dosage: 50 MILLIGRAM, ONCE A DAY,50 [MG/D ]
     Route: 064
     Dates: start: 20171012, end: 20180614
  3. METHYLDOPA. [Concomitant]
     Active Substance: METHYLDOPA
     Indication: HYPERTENSION
     Dosage: 750 MILLIGRAM, ONCE A DAY,750 [MG/D (250-250-250) ]
     Route: 064
     Dates: start: 20180615, end: 20180621
  4. RAMIPRIL. [Suspect]
     Active Substance: RAMIPRIL
     Indication: HYPERTENSION
     Dosage: 10 MILLIGRAM, ONCE A DAY,10 [MG/D ]
     Route: 064
     Dates: start: 20171012, end: 20180614
  5. AMLODIPINE [Concomitant]
     Active Substance: AMLODIPINE BESYLATE
     Indication: HYPERTENSION
     Dosage: 10 MILLIGRAM, ONCE A DAY,10 [MG/D ]
     Route: 064
     Dates: start: 20171012, end: 20180614
  6. BETAMETHASONE. [Concomitant]
     Active Substance: BETAMETHASONE
     Indication: MATERNAL THERAPY TO ENHANCE FOETAL LUNG MATURITY
     Dosage: 12 MILLIGRAM, ONCE A DAY,12 [MG/D ]
     Route: 064
     Dates: start: 20180614, end: 20180615
  7. BAYOTENSIN [Concomitant]
     Active Substance: NITRENDIPINE
     Indication: ANGINA PECTORIS
     Dosage: UNK
     Route: 064
     Dates: start: 20180613, end: 20180621
  8. FENOTEROL [Concomitant]
     Active Substance: FENOTEROL
     Indication: TOCOLYSIS
     Dosage: UNK
     Route: 064
     Dates: start: 20180613, end: 20180621

REACTIONS (5)
  - Selective eating disorder [Recovered/Resolved]
  - Neonatal respiratory failure [Recovered/Resolved]
  - Foetal exposure during pregnancy [Unknown]
  - Small for dates baby [Recovered/Resolved]
  - Microcephaly [Unknown]

NARRATIVE: CASE EVENT DATE: 20180621
